FAERS Safety Report 15236744 (Version 1)
Quarter: 2018Q3

REPORT INFORMATION
  Report Type: Spontaneous
  Country: US (occurrence: US)
  Receive Date: 20180803
  Receipt Date: 20180803
  Transmission Date: 20181010
  Serious: No
  Sender: FDA-Public Use
  Company Number: US-ALLERGAN-1826407US

PATIENT
  Sex: Female

DRUGS (1)
  1. RHOFADE [Suspect]
     Active Substance: OXYMETAZOLINE HYDROCHLORIDE
     Indication: ROSACEA
     Dosage: LESS THAN PEA SIZED TO AFFECTED AREAS
     Route: 061
     Dates: start: 201805, end: 201805

REACTIONS (3)
  - Product quality issue [Unknown]
  - Rosacea [Recovering/Resolving]
  - Incorrect dose administered [Unknown]

NARRATIVE: CASE EVENT DATE: 201805
